FAERS Safety Report 18665138 (Version 3)
Quarter: 2021Q1

REPORT INFORMATION
  Report Type: Report from Study
  Country: US (occurrence: US)
  Receive Date: 20201225
  Receipt Date: 20210129
  Transmission Date: 20210419
  Serious: Yes (Death, Hospitalization, Other)
  Sender: FDA-Public Use
  Company Number: US-ASTRAZENECA-2020SF72283

PATIENT
  Age: 30945 Day
  Sex: Male

DRUGS (2)
  1. ELIQUIS [Concomitant]
     Active Substance: APIXABAN
     Indication: ATRIAL FIBRILLATION
  2. TAGRISSO [Suspect]
     Active Substance: OSIMERTINIB
     Indication: LUNG CARCINOMA CELL TYPE UNSPECIFIED STAGE IV
     Route: 048
     Dates: start: 20200629

REACTIONS (17)
  - Dyspnoea [Unknown]
  - Fall [Unknown]
  - Hypertension [Unknown]
  - Feeling abnormal [Recovered/Resolved]
  - Internal haemorrhage [Unknown]
  - Hypophagia [Unknown]
  - Asthenia [Unknown]
  - Dysstasia [Unknown]
  - Cerebrovascular accident [Unknown]
  - Pleural effusion [Unknown]
  - Dysphagia [Unknown]
  - Loss of personal independence in daily activities [Unknown]
  - Depressed mood [Unknown]
  - Death [Fatal]
  - SARS-CoV-2 test positive [Recovered/Resolved]
  - Hospice care [Unknown]
  - Orthostatic hypotension [Unknown]

NARRATIVE: CASE EVENT DATE: 2020
